FAERS Safety Report 18733428 (Version 2)
Quarter: 2021Q1

REPORT INFORMATION
  Report Type: Report from Study
  Country: None (occurrence: US)
  Receive Date: 20210112
  Receipt Date: 20210204
  Transmission Date: 20210419
  Serious: Yes (Hospitalization)
  Sender: FDA-Public Use
  Company Number: US-ABBVIE-19K-163-3155542-00

PATIENT
  Age: 64 Year
  Sex: Male

DRUGS (7)
  1. IMBRUVICA [Suspect]
     Active Substance: IBRUTINIB
     Route: 048
     Dates: start: 20190730
  2. IMBRUVICA [Suspect]
     Active Substance: IBRUTINIB
     Route: 048
     Dates: start: 20200807
  3. IMBRUVICA [Suspect]
     Active Substance: IBRUTINIB
     Route: 048
  4. IMBRUVICA [Suspect]
     Active Substance: IBRUTINIB
     Route: 048
  5. IMBRUVICA [Suspect]
     Active Substance: IBRUTINIB
     Dosage: 560 MG, QD
     Route: 048
     Dates: start: 20190730
  6. IMBRUVICA [Suspect]
     Active Substance: IBRUTINIB
     Indication: MANTLE CELL LYMPHOMA
     Dosage: 560 MG, QD
     Route: 048
     Dates: start: 20190731
  7. IMBRUVICA [Suspect]
     Active Substance: IBRUTINIB
     Route: 048
     Dates: start: 20200731

REACTIONS (27)
  - Abscess limb [Not Recovered/Not Resolved]
  - Heart rate increased [Unknown]
  - Heart rate irregular [Unknown]
  - Abscess [Unknown]
  - Dry skin [Unknown]
  - Blood magnesium increased [Unknown]
  - Faeces soft [Unknown]
  - Acne pustular [Unknown]
  - Body temperature fluctuation [Unknown]
  - Gout [Not Recovered/Not Resolved]
  - Myalgia [Unknown]
  - Pruritus [Unknown]
  - Rash macular [Not Recovered/Not Resolved]
  - White blood cell count decreased [Unknown]
  - Rash [Unknown]
  - Pyrexia [Unknown]
  - Hypophagia [Unknown]
  - Erythema [Unknown]
  - Dry eye [Unknown]
  - Rash pruritic [Not Recovered/Not Resolved]
  - Sepsis [Unknown]
  - Dermatitis acneiform [Unknown]
  - Diarrhoea [Unknown]
  - Hypoaesthesia [Unknown]
  - Acne [Not Recovered/Not Resolved]
  - Eye pruritus [Unknown]
  - Infection [Not Recovered/Not Resolved]

NARRATIVE: CASE EVENT DATE: 201907
